FAERS Safety Report 5878573-1 (Version None)
Quarter: 2008Q3

REPORT INFORMATION
  Report Type: 
  Country: None (occurrence: None)
  Receive Date: 20080909
  Receipt Date: 20080827
  Transmission Date: 20090109
  Serious: Yes (Other)
  Sender: FDA-Public Use
  Company Number: US021896

PATIENT
  Age: 72 Year
  Sex: Male

DRUGS (5)
  1. MODAFINIL [Suspect]
     Indication: NARCOLEPSY
     Dosage: 150 MG QD ORAL
     Route: 048
     Dates: start: 20070903, end: 20071018
  2. ANAFRANIL [Concomitant]
  3. LANDORMIN [Concomitant]
  4. RIVOTRIL [Concomitant]
  5. DDDD [Concomitant]

REACTIONS (6)
  - AMNESIA [None]
  - ASTHENIA [None]
  - CONDITION AGGRAVATED [None]
  - DYSSTASIA [None]
  - PARKINSONIAN GAIT [None]
  - TRANSIENT ISCHAEMIC ATTACK [None]
